FAERS Safety Report 7818426-2 (Version None)
Quarter: 2011Q4

REPORT INFORMATION
  Report Type: 
  Country: None (occurrence: None)
  Receive Date: 20111017
  Receipt Date: 20111012
  Transmission Date: 20120403
  Serious: Yes (Life-Threatening)
  Sender: FDA-Public Use
  Company Number: FR-ASTRAZENECA-2011SE61298

PATIENT
  Age: 48 Year
  Sex: Male

DRUGS (4)
  1. CELOCURINE [Suspect]
     Indication: ENDOTRACHEAL INTUBATION
     Route: 042
     Dates: start: 20110907
  2. SUFENTANIL CITRATE [Suspect]
     Route: 042
     Dates: start: 20110907
  3. KETALAR [Suspect]
     Route: 042
     Dates: start: 20110907
  4. DIPRIVAN [Suspect]
     Route: 042
     Dates: start: 20110907

REACTIONS (2)
  - CARDIAC ARREST [None]
  - ANAPHYLACTIC SHOCK [None]
